FAERS Safety Report 13638750 (Version 1)
Quarter: 2017Q2

REPORT INFORMATION
  Report Type: Spontaneous
  Country: US (occurrence: US)
  Receive Date: 20170609
  Receipt Date: 20170609
  Transmission Date: 20170830
  Serious: Yes (Other)
  Sender: FDA-Public Use
  Company Number: US-ELI_LILLY_AND_COMPANY-US201706001633

PATIENT
  Age: 55 Year
  Sex: Male

DRUGS (2)
  1. ALIMTA [Suspect]
     Active Substance: PEMETREXED DISODIUM
     Indication: NON-SMALL CELL LUNG CANCER
     Dosage: 500 MG/M2, UNKNOWN
     Route: 065
     Dates: start: 20150319, end: 20160128
  2. CISPLATIN. [Concomitant]
     Active Substance: CISPLATIN
     Indication: PRODUCT USED FOR UNKNOWN INDICATION
     Dosage: UNK, UNKNOWN
     Route: 065
     Dates: start: 20150319, end: 20160128

REACTIONS (17)
  - Odynophagia [Unknown]
  - Nausea [Unknown]
  - Paraesthesia [Unknown]
  - Dysphagia [Unknown]
  - Dyspnoea [Unknown]
  - Hypophagia [Unknown]
  - Oesophagitis [Unknown]
  - Arrhythmia [Unknown]
  - Dysgeusia [Unknown]
  - Paranasal sinus discomfort [Unknown]
  - Asthenia [Unknown]
  - Malignant neoplasm progression [Unknown]
  - Cough [Unknown]
  - Candida infection [Unknown]
  - Sinusitis [Unknown]
  - Decreased appetite [Unknown]
  - Fatigue [Unknown]
